FAERS Safety Report 12279275 (Version 3)
Quarter: 2016Q2

REPORT INFORMATION
  Report Type: Report from Study
  Country: JP (occurrence: JP)
  Receive Date: 20160418
  Receipt Date: 20160606
  Transmission Date: 20160815
  Serious: Yes (Hospitalization)
  Sender: FDA-Public Use
  Company Number: PHJP2016JP008727

PATIENT
  Age: 11 Year
  Sex: Male
  Weight: 36 kg

DRUGS (6)
  1. EVEROLIMUS [Suspect]
     Active Substance: EVEROLIMUS
     Indication: EPILEPSY
     Dosage: 4 MG, QD
     Route: 048
     Dates: start: 20160402, end: 20160408
  2. DIAMOX SEQUELS [Concomitant]
     Active Substance: ACETAZOLAMIDE
     Indication: EPILEPSY
     Dosage: 225 MG, BID
     Route: 048
     Dates: start: 20120830
  3. BIOFERMIN [Concomitant]
     Active Substance: BACILLUS SUBTILIS\LACTOBACILLUS ACIDOPHILUS\STREPTOCOCCUS FAECAIS
     Indication: CONSTIPATION
     Dosage: 7.5 MG, BID
     Route: 048
     Dates: start: 20100316
  4. PLACEBO [Suspect]
     Active Substance: UNSPECIFIED INGREDIENT
     Indication: EPILEPSY
     Dosage: UNK
     Route: 048
     Dates: start: 20141112
  5. ORAP [Concomitant]
     Active Substance: PIMOZIDE
     Indication: AUTISM
     Dosage: 2.5 MG, BID
     Route: 048
     Dates: start: 20150903
  6. VALERIN [Concomitant]
     Active Substance: VALPROATE SODIUM
     Indication: EPILEPSY
     Dosage: 350 MG, BID
     Route: 048
     Dates: start: 20050719

REACTIONS (1)
  - Status epilepticus [Recovered/Resolved]

NARRATIVE: CASE EVENT DATE: 20160408
